FAERS Safety Report 14999390 (Version 1)
Quarter: 2018Q2

REPORT INFORMATION
  Report Type: Spontaneous
  Country: US (occurrence: US)
  Receive Date: 20180521
  Receipt Date: 20180521
  Transmission Date: 20180711
  Serious: No
  Sender: FDA-Public Use
  Company Number: None

PATIENT
  Age: 76 Year
  Sex: Female

DRUGS (1)
  1. IBRANCE [Suspect]
     Active Substance: PALBOCICLIB
     Indication: BREAST CYST
     Dosage: ?75MG 1CAP DAILY FOR 21 DAYS, 7 DAVS OFF    PO                      ?
     Route: 048
     Dates: start: 20180424

REACTIONS (2)
  - Pain in extremity [None]
  - Pruritus [None]

NARRATIVE: CASE EVENT DATE: 20180518
